FAERS Safety Report 17436946 (Version 1)
Quarter: 2020Q1

REPORT INFORMATION
  Report Type: Spontaneous
  Country: US (occurrence: US)
  Receive Date: 20200219
  Receipt Date: 20200219
  Transmission Date: 20200409
  Serious: Yes (Death, Other)
  Sender: FDA-Public Use
  Company Number: US-SA-2020SA042261

PATIENT
  Age: 64 Year
  Sex: Male

DRUGS (7)
  1. PLAVIX [Suspect]
     Active Substance: CLOPIDOGREL BISULFATE
     Dosage: 75 MG
     Dates: start: 20120630
  2. MELATONIN [Concomitant]
     Active Substance: MELATONIN
  3. ELIQUIS [Suspect]
     Active Substance: APIXABAN
     Dosage: 5 MG, BID
     Dates: start: 20120630
  4. LOVASTATIN. [Concomitant]
     Active Substance: LOVASTATIN
  5. CARVEDILOL. [Concomitant]
     Active Substance: CARVEDILOL
  6. FAMOTIDINE. [Concomitant]
     Active Substance: FAMOTIDINE
     Indication: FAECES SOFT
  7. ASPIRINE [Concomitant]
     Active Substance: ASPIRIN

REACTIONS (1)
  - Death [Fatal]
